FAERS Safety Report 13359249 (Version 1)
Quarter: 2017Q1

REPORT INFORMATION
  Report Type: Spontaneous
  Country: US (occurrence: US)
  Receive Date: 20170321
  Receipt Date: 20170321
  Transmission Date: 20170429
  Serious: No
  Sender: FDA-Public Use
  Company Number: None

PATIENT
  Age: 56 Year
  Sex: Female

DRUGS (1)
  1. NYSTATIN. [Suspect]
     Active Substance: NYSTATIN
     Route: 048
     Dates: start: 20170309, end: 20170310

REACTIONS (4)
  - Product taste abnormal [None]
  - Throat irritation [None]
  - Oral discomfort [None]
  - Dysgeusia [None]

NARRATIVE: CASE EVENT DATE: 20170309
